FAERS Safety Report 4890451-3 (Version None)
Quarter: 2005Q4

REPORT INFORMATION
  Report Type: 
  Country: None (occurrence: None)
  Receive Date: 20051216
  Receipt Date: 20051006
  Transmission Date: 20060501
  Serious: No
  Sender: FDA-Public Use
  Company Number: BDI-007606

PATIENT
  Age: 35 Year
  Sex: Female
  Weight: 66 kg

DRUGS (2)
  1. MULTIHANCE [Suspect]
     Indication: NUCLEAR MAGNETIC RESONANCE IMAGING BRAIN
     Dosage: 14 ML ONCE IV
     Route: 042
     Dates: start: 20051003, end: 20051003
  2. MULTIHANCE [Suspect]
     Indication: PARAESTHESIA
     Dosage: 14 ML ONCE IV
     Route: 042
     Dates: start: 20051003, end: 20051003

REACTIONS (2)
  - ABDOMINAL PAIN [None]
  - FLUSHING [None]
